FAERS Safety Report 17485569 (Version 4)
Quarter: 2021Q3

REPORT INFORMATION
  Report Type: Spontaneous
  Country: US (occurrence: US)
  Receive Date: 20200302
  Receipt Date: 20210812
  Transmission Date: 20211014
  Serious: Yes (Hospitalization)
  Sender: FDA-Public Use
  Company Number: US-SA-2020SA052710

PATIENT
  Sex: Female
  Weight: 49.43 kg

DRUGS (5)
  1. STERILE WATER [Concomitant]
     Active Substance: WATER
     Dosage: UNK, UNK
     Route: 065
  2. CEREZYME [Suspect]
     Active Substance: IMIGLUCERASE
     Indication: FABRY^S DISEASE
     Dosage: 2800 IU, QW
     Route: 042
     Dates: start: 19970813
  3. SODIUM CHLORIDE. [Concomitant]
     Active Substance: SODIUM CHLORIDE
     Dosage: UNK, UNK
     Route: 065
  4. NORMAL SALINE [Concomitant]
     Active Substance: SODIUM CHLORIDE
     Dosage: UNK, UNK
     Route: 065
  5. EPINEPHRINE. [Concomitant]
     Active Substance: EPINEPHRINE
     Dosage: UNK, UNK
     Route: 065

REACTIONS (5)
  - Nasopharyngitis [Unknown]
  - Platelet count decreased [Unknown]
  - Exposure during pregnancy [Unknown]
  - Product use in unapproved indication [Unknown]
  - Delivery [Unknown]

NARRATIVE: CASE EVENT DATE: 2021
